FAERS Safety Report 23532356 (Version 1)
Quarter: 2024Q1

REPORT INFORMATION
  Report Type: Report from Study
  Country: US (occurrence: US)
  Receive Date: 20240216
  Receipt Date: 20240216
  Transmission Date: 20240409
  Serious: Yes (Death)
  Sender: FDA-Public Use
  Company Number: US-FERRING-2024FE00613

PATIENT
  Age: 90 Year
  Sex: Female
  Weight: 71.7 kg

DRUGS (19)
  1. REBYOTA [Suspect]
     Active Substance: DONOR HUMAN STOOL
     Indication: Clostridium difficile infection
     Dosage: A SINGLE DOSE OF 150 ML MICROBIOME SUSPENSION.
     Route: 054
     Dates: start: 20231208
  2. LIPITOR [Concomitant]
     Active Substance: ATORVASTATIN CALCIUM
     Indication: Hyperlipidaemia
     Dosage: 10 MG, 1 TIME DAILY
     Route: 048
     Dates: start: 20230504, end: 20240204
  3. CALCIUM CITRATE [Concomitant]
     Active Substance: CALCIUM CITRATE
     Indication: Osteoporosis
     Dosage: 400 MG, 1 TIME DAILY
     Route: 048
  4. CALCIUM CITRATE [Concomitant]
     Active Substance: CALCIUM CITRATE
     Indication: Hyperparathyroidism
  5. CARDIZEM CD [Concomitant]
     Active Substance: DILTIAZEM HYDROCHLORIDE
     Indication: Essential hypertension
     Dosage: 120 MG, 2 TIMES DAILY
     Route: 048
     Dates: start: 20231020, end: 20240204
  6. DULOXETINE [Concomitant]
     Active Substance: DULOXETINE
     Indication: Depression
     Dosage: 30 MG, 1 TIME DAILY
     Route: 048
     Dates: start: 20220706, end: 20240204
  7. FLUOXETINE [Concomitant]
     Active Substance: FLUOXETINE HYDROCHLORIDE
     Indication: Depression
     Dosage: 10 MG, 1 TIME DAILY
     Route: 048
     Dates: start: 20220706, end: 20240203
  8. LASIX [Concomitant]
     Active Substance: FUROSEMIDE
     Indication: Essential hypertension
     Dosage: 20 MG, 1 TIME DAILY
     Route: 048
     Dates: start: 20230707, end: 20240204
  9. NAMENDA [Concomitant]
     Active Substance: MEMANTINE HYDROCHLORIDE
     Indication: Dementia Alzheimer^s type
     Dosage: 10 MG, 2 TIMES DAILY
     Route: 048
     Dates: start: 20231108, end: 20240204
  10. MAGNESIUM OXIDE [Concomitant]
     Active Substance: MAGNESIUM OXIDE
     Indication: Hypomagnesaemia
     Dosage: 400 MG, 1 TIME DAILY
     Route: 048
     Dates: start: 20230616, end: 20240204
  11. LOPRESSOR [Concomitant]
     Active Substance: METOPROLOL TARTRATE
     Indication: Essential hypertension
     Dosage: 100 MG, 2 TIMES DAILY
     Route: 048
     Dates: start: 20231020, end: 20240204
  12. BUSPAR [Concomitant]
     Active Substance: BUSPIRONE HYDROCHLORIDE
     Dosage: 5 MG, 2 TIMES DAILY
     Route: 048
     Dates: start: 20230811
  13. PRILOSEC [Concomitant]
     Active Substance: OMEPRAZOLE MAGNESIUM
     Indication: Gastrooesophageal reflux disease
     Dosage: 40 MG, 1 TIME DAILY
     Route: 048
  14. PRILOSEC [Concomitant]
     Active Substance: OMEPRAZOLE MAGNESIUM
     Indication: Peptic ulcer
  15. OMEPRAZOLE [Concomitant]
     Active Substance: OMEPRAZOLE
     Indication: Gastrooesophageal reflux disease
     Dosage: 40 MG, 1 TIME DAILY
     Route: 048
  16. POTASSIUM CHLORIDE [Concomitant]
     Active Substance: POTASSIUM CHLORIDE
     Indication: Essential hypertension
     Dosage: 10 MEQ, 2 TIMES DAILY
     Route: 048
     Dates: start: 20230707
  17. PREDNISOLONE [Concomitant]
     Active Substance: PREDNISOLONE
     Indication: Polymyalgia rheumatica
     Dosage: 5 MG, 1 TIME DAILY
     Route: 048
  18. RECLAST [Concomitant]
     Active Substance: ZOLEDRONIC ACID
     Indication: Osteoporosis
     Dosage: UNK
     Dates: start: 20200225, end: 20240204
  19. TYLENOL [Concomitant]
     Active Substance: ACETAMINOPHEN
     Indication: Pain
     Dosage: 500 MG, 2 TABLETS BY MOUTH EVERY 6 HOURS
     Route: 048
     Dates: start: 20220706

REACTIONS (1)
  - Large intestinal obstruction [Fatal]

NARRATIVE: CASE EVENT DATE: 20240203
